FAERS Safety Report 7232590-8 (Version None)
Quarter: 2011Q1

REPORT INFORMATION
  Report Type: 
  Country: None (occurrence: None)
  Receive Date: 20110119
  Receipt Date: 20110106
  Transmission Date: 20110831
  Serious: Yes (Hospitalization)
  Sender: FDA-Public Use
  Company Number: PHFR2011GB00535

PATIENT
  Sex: Male

DRUGS (2)
  1. CLOZARIL [Suspect]
     Indication: SCHIZOPHRENIA
     Dosage: UNK
     Route: 048
     Dates: start: 19971219
  2. INSULIN [Concomitant]

REACTIONS (7)
  - BODY TEMPERATURE INCREASED [None]
  - PNEUMONIA [None]
  - DYSPNOEA [None]
  - CONFUSIONAL STATE [None]
  - VIRAL INFECTION [None]
  - OXYGEN SATURATION DECREASED [None]
  - BRONCHITIS [None]
